FAERS Safety Report 25303758 (Version 3)
Quarter: 2025Q4

REPORT INFORMATION
  Report Type: Spontaneous
  Country: US (occurrence: US)
  Receive Date: 20250513
  Receipt Date: 20251009
  Transmission Date: 20260117
  Serious: No
  Sender: BRISTOL-MYERS SQUIBB COMPANY
  Company Number: US-BRISTOL-MYERS SQUIBB COMPANY-2025-064792

PATIENT
  Age: 60 Year
  Sex: Male

DRUGS (3)
  1. ORENCIA [Suspect]
     Active Substance: ABATACEPT
     Indication: Rheumatoid arthritis
     Dates: start: 201807
  2. ORENCIA [Suspect]
     Active Substance: ABATACEPT
     Dates: start: 201807
  3. ORENCIA [Suspect]
     Active Substance: ABATACEPT
     Dates: start: 201807

REACTIONS (6)
  - Arthralgia [Unknown]
  - Rheumatoid arthritis [Recovering/Resolving]
  - Gastrointestinal disorder [Unknown]
  - Chest discomfort [Unknown]
  - Liver disorder [Unknown]
  - Joint swelling [Unknown]
